FAERS Safety Report 7940575-9 (Version None)
Quarter: 2011Q4

REPORT INFORMATION
  Report Type: 
  Country: None (occurrence: None)
  Receive Date: 20111128
  Receipt Date: 20111114
  Transmission Date: 20120403
  Serious: Yes (Other)
  Sender: FDA-Public Use
  Company Number: JP-ELI_LILLY_AND_COMPANY-JP201010005087

PATIENT
  Sex: Female

DRUGS (3)
  1. HUMULIN 70/30 [Suspect]
     Dosage: 13 IU, BID
     Route: 058
  2. HUMULIN 70/30 [Suspect]
     Dosage: 12 IU, EACH MORNING
     Route: 058
  3. HUMULIN 70/30 [Suspect]
     Dosage: 10 IU, EACH EVENING

REACTIONS (14)
  - ASTHENIA [None]
  - ABDOMINAL PAIN [None]
  - HYPOGLYCAEMIA [None]
  - HYPOACUSIS [None]
  - COLD SWEAT [None]
  - MYOCARDIAL INFARCTION [None]
  - INJECTION SITE INDURATION [None]
  - ANGINA PECTORIS [None]
  - HEADACHE [None]
  - ABDOMINAL DISCOMFORT [None]
  - VISION BLURRED [None]
  - ABASIA [None]
  - DIZZINESS [None]
  - CYSTITIS [None]
